FAERS Safety Report 7592534-6 (Version None)
Quarter: 2011Q3

REPORT INFORMATION
  Report Type: 
  Country: None (occurrence: None)
  Receive Date: 20110706
  Receipt Date: 20110628
  Transmission Date: 20111222
  Serious: Yes (Hospitalization, Other)
  Sender: FDA-Public Use
  Company Number: BR-SANOFI-AVENTIS-2011SA038827

PATIENT
  Age: 62 Year
  Sex: Male
  Weight: 55 kg

DRUGS (14)
  1. CARVEDILOL [Concomitant]
     Route: 048
  2. CILOSTAZOL [Concomitant]
     Route: 048
     Dates: start: 20100101
  3. ALDACTONE [Concomitant]
     Route: 048
     Dates: start: 20100101
  4. ASPIRIN [Concomitant]
     Indication: CARDIAC DISORDER
     Route: 048
     Dates: start: 20100101
  5. ANCORON [Concomitant]
     Route: 048
  6. AUTOPEN 24 [Suspect]
     Dates: start: 20110625
  7. LACTULOSE [Concomitant]
     Route: 048
  8. SIMVASTATIN [Concomitant]
     Route: 048
  9. DIGOXIN [Concomitant]
     Route: 048
     Dates: start: 20100101
  10. LEVOTHYROXINE SODIUM [Concomitant]
     Indication: HYPOTHYROIDISM
     Route: 048
     Dates: start: 20100101
  11. LASIX [Concomitant]
     Route: 048
     Dates: start: 20100101
  12. TRENTAL [Concomitant]
     Route: 048
  13. CILOSTAZOL [Concomitant]
     Route: 048
  14. LANTUS [Suspect]
     Indication: TYPE 2 DIABETES MELLITUS
     Route: 058

REACTIONS (10)
  - MYOCARDIAL INFARCTION [None]
  - PNEUMONIA [None]
  - CARDIAC FAILURE [None]
  - OEDEMA PERIPHERAL [None]
  - HYPOGLYCAEMIA [None]
  - HYPERHIDROSIS [None]
  - COUGH [None]
  - PAIN IN EXTREMITY [None]
  - HYPERGLYCAEMIA [None]
  - DYSPNOEA [None]
